FAERS Safety Report 4995969-0 (Version None)
Quarter: 2006Q2

REPORT INFORMATION
  Report Type: 
  Country: None (occurrence: None)
  Receive Date: 20060504
  Receipt Date: 20060502
  Transmission Date: 20061013
  Serious: Yes (Other)
  Sender: FDA-Public Use
  Company Number: GBWYE593202MAY06

PATIENT
  Age: 67 Year

DRUGS (3)
  1. IBUPROFEN [Suspect]
  2. HEPARIN [Suspect]
     Indication: DEEP VEIN THROMBOSIS
  3. MORPHINE [Concomitant]

REACTIONS (3)
  - BARRETT'S OESOPHAGUS [None]
  - GASTROINTESTINAL HAEMORRHAGE [None]
  - POST PROCEDURAL HAEMORRHAGE [None]
